FAERS Safety Report 7629527-6 (Version None)
Quarter: 2011Q3

REPORT INFORMATION
  Report Type: 
  Country: None (occurrence: None)
  Receive Date: 20110701
  Receipt Date: 20110321
  Transmission Date: 20111222
  Serious: Yes (Other)
  Sender: FDA-Public Use
  Company Number: 7049308

PATIENT
  Age: 40 Year
  Sex: Male
  Weight: 95 kg

DRUGS (7)
  1. ATENOLOL [Concomitant]
  2. AMANTADINE HCL [Concomitant]
  3. LISINOPRIL [Concomitant]
  4. FLUOXETINE HYDROCHLORIDE [Concomitant]
  5. RANITIDINE [Concomitant]
  6. REBIF [Suspect]
     Indication: MULTIPLE SCLEROSIS
     Dosage: 44 MCG, 3 IN 1 WK, SUBCUTANEOUS
     Route: 058
     Dates: start: 20080308
  7. MILK THISTLE (ALL OTHER THERAPEUTIC PRODUCTS) [Concomitant]

REACTIONS (3)
  - HEPATIC ENZYME INCREASED [None]
  - POLLAKIURIA [None]
  - ABDOMINAL PAIN UPPER [None]
